FAERS Safety Report 9492892 (Version 1)
Quarter: 2013Q3

REPORT INFORMATION
  Report Type: Spontaneous
  Country: IN (occurrence: IN)
  Receive Date: 20130901
  Receipt Date: 20130901
  Transmission Date: 20140515
  Serious: Yes (Hospitalization, Other)
  Sender: FDA-Public Use
  Company Number: IN-PFIZER INC-2013246747

PATIENT
  Age: 46 Year
  Sex: Female
  Weight: 83 kg

DRUGS (5)
  1. QUETIAPINE FUMARATE [Suspect]
     Indication: ACUTE PSYCHOSIS
     Dosage: 300 MG/DAY
  2. QUETIAPINE FUMARATE [Suspect]
     Dosage: 600 MG/DAY
  3. SERTRALINE HCL [Suspect]
     Dosage: 100 MG, 1X/DAY
  4. CLONAZEPAM [Suspect]
     Indication: ACUTE PSYCHOSIS
     Dosage: 6 MG/DAY
  5. TRIFLUOPERAZINE [Suspect]
     Dosage: 15 MG/DAY

REACTIONS (4)
  - Somatoform disorder pregnancy [Recovered/Resolved]
  - Blood prolactin increased [Unknown]
  - Metabolic syndrome [Unknown]
  - Weight increased [Recovered/Resolved]
